FAERS Safety Report 13986740 (Version 1)
Quarter: 2017Q3

REPORT INFORMATION
  Report Type: Spontaneous
  Country: US (occurrence: US)
  Receive Date: 20170919
  Receipt Date: 20170919
  Transmission Date: 20171128
  Serious: No
  Sender: FDA-Public Use
  Company Number: US-009507513-1709USA007378

PATIENT
  Sex: Female

DRUGS (1)
  1. VYTORIN [Suspect]
     Active Substance: EZETIMIBE\SIMVASTATIN
     Dosage: STRENGTH: ^10/10^
     Route: 048

REACTIONS (3)
  - Adverse event [Unknown]
  - Drug interaction [Unknown]
  - Drug dispensing error [Unknown]
